FAERS Safety Report 15000289 (Version 1)
Quarter: 2018Q2

REPORT INFORMATION
  Report Type: Spontaneous
  Country: US (occurrence: US)
  Receive Date: 20180612
  Receipt Date: 20180612
  Transmission Date: 20180711
  Serious: No
  Sender: FDA-Public Use
  Company Number: US-PFIZER INC-2017540029

PATIENT
  Sex: Female

DRUGS (10)
  1. DOCETAXEL. [Suspect]
     Active Substance: DOCETAXEL
     Indication: BREAST CANCER
     Dosage: UNK
     Dates: start: 20100115, end: 20110401
  2. TRAMADOL. [Concomitant]
     Active Substance: TRAMADOL
  3. GLUCOSAMINE [Concomitant]
     Active Substance: GLUCOSAMINE
  4. COUMADIN [Concomitant]
     Active Substance: WARFARIN SODIUM
  5. ATIVAN [Concomitant]
     Active Substance: LORAZEPAM
  6. SIMVASTATIN. [Concomitant]
     Active Substance: SIMVASTATIN
  7. HERCEPTIN [Concomitant]
     Active Substance: TRASTUZUMAB
  8. METOPROLOL. [Concomitant]
     Active Substance: METOPROLOL
  9. MELOXICAM. [Concomitant]
     Active Substance: MELOXICAM
  10. CARVEDILOL. [Concomitant]
     Active Substance: CARVEDILOL

REACTIONS (1)
  - Alopecia [Not Recovered/Not Resolved]

NARRATIVE: CASE EVENT DATE: 201002
